FAERS Safety Report 9295928 (Version 1)
Quarter: 2013Q2

REPORT INFORMATION
  Report Type: Spontaneous
  Country: NZ (occurrence: None)
  Receive Date: 20130514
  Receipt Date: 20130514
  Transmission Date: 20140414
  Serious: Yes (Other)
  Sender: FDA-Public Use
  Company Number: IPC201305-000197

PATIENT
  Sex: Female

DRUGS (5)
  1. ATENOLOL (ATENOLOL) (ATENOLOL) [Suspect]
     Indication: CARDIAC DISORDER
     Route: 048
     Dates: start: 201211
  2. ATENOLOL [Concomitant]
  3. ACCURETIC [Concomitant]
  4. DISPRIN [Concomitant]
  5. SIMVASTATIN [Concomitant]

REACTIONS (1)
  - Extrasystoles [None]
